FAERS Safety Report 24722816 (Version 1)
Quarter: 2024Q4

REPORT INFORMATION
  Report Type: Spontaneous
  Country: US (occurrence: None)
  Receive Date: 20241211
  Receipt Date: 20241211
  Transmission Date: 20250114
  Serious: Yes (Hospitalization)
  Sender: Public
  Company Number: None

PATIENT
  Age: 63 Year
  Sex: Male

DRUGS (1)
  1. VENCLEXTA [Suspect]
     Active Substance: VENETOCLAX
     Indication: Peripheral T-cell lymphoma unspecified
     Dosage: FREQUENCY : DAILY;?DAILY  124 DAYS ON AND  14 DAYS OFF
     Route: 048

REACTIONS (2)
  - Hospitalisation [None]
  - Intentional dose omission [None]
